FAERS Safety Report 6905294-6 (Version None)
Quarter: 2010Q3

REPORT INFORMATION
  Report Type: 
  Country: None (occurrence: None)
  Receive Date: 20100802
  Receipt Date: 20100722
  Transmission Date: 20110219
  Serious: Yes (Hospitalization)
  Sender: FDA-Public Use
  Company Number: UTC-001270

PATIENT
  Age: 55 Year
  Sex: Female
  Weight: 106 kg

DRUGS (18)
  1. REMODULIN [Suspect]
     Dosage: 67.68 UG/KG (0.047 UG/KG, 1 IN 1 MIN), INTRAVENOUS
     Route: 042
     Dates: start: 20091205
  2. REVATIO [Concomitant]
  3. LETAIRIS (AMBRISENTAN) [Concomitant]
  4. SPIRONOLACTONE [Concomitant]
  5. WARFARIN SODIUM [Concomitant]
  6. ASPIRIN [Concomitant]
  7. CLONAZEPAM [Concomitant]
  8. KLOR-CON [Concomitant]
  9. EVISTA [Concomitant]
  10. REQUIP XL [Concomitant]
  11. TRAZODONE HCL [Concomitant]
  12. CYMBALTA [Concomitant]
  13. LOVASTATIN [Concomitant]
  14. GABAPENTIN [Concomitant]
  15. TRAMADOL HCL [Concomitant]
  16. PERCOCET [Concomitant]
  17. OXYCONTIN [Concomitant]
  18. GLIPIZIDE XL (GLIPIZIDE) [Concomitant]

REACTIONS (1)
  - PULMONARY OEDEMA [None]
